FAERS Safety Report 4793852-7 (Version None)
Quarter: 2005Q4

REPORT INFORMATION
  Report Type: 
  Country: None (occurrence: None)
  Receive Date: 20051006
  Receipt Date: 20051006
  Transmission Date: 20060501
  Serious: Yes (Hospitalization)
  Sender: FDA-Public Use
  Company Number: None

PATIENT
  Age: 5 Month
  Sex: Male

DRUGS (4)
  1. RILUTEK [Suspect]
     Indication: SPINAL MUSCULAR ATROPHY
     Dosage: 35 MG OTHER
     Dates: start: 20050827, end: 20050913
  2. PENG [Concomitant]
  3. RANITIDINE [Concomitant]
  4. CANEPRAZOLE [Concomitant]

REACTIONS (3)
  - CYANOSIS [None]
  - DYSPNOEA [None]
  - PNEUMONIA [None]
